FAERS Safety Report 24022322 (Version 2)
Quarter: 2024Q3

REPORT INFORMATION
  Report Type: Spontaneous
  Country: JP (occurrence: JP)
  Receive Date: 20240627
  Receipt Date: 20240710
  Transmission Date: 20241016
  Serious: No
  Sender: ROCHE
  Company Number: JP-CHUGAI-2023027668

PATIENT
  Sex: Female

DRUGS (2)
  1. ROZLYTREK [Suspect]
     Active Substance: ENTRECTINIB
     Indication: Non-small cell lung cancer
     Dosage: 600 MILLIGRAM, QD
     Route: 065
     Dates: start: 20230719
  2. ROZLYTREK [Suspect]
     Active Substance: ENTRECTINIB
     Dosage: 200 MILLIGRAM
     Route: 065

REACTIONS (1)
  - Renal impairment [Not Recovered/Not Resolved]

NARRATIVE: CASE EVENT DATE: 20230727
